FAERS Safety Report 5811757-7 (Version None)
Quarter: 2008Q3

REPORT INFORMATION
  Report Type: 
  Country: None (occurrence: None)
  Receive Date: 20080716
  Receipt Date: 20080711
  Transmission Date: 20090109
  Serious: Yes (Other)
  Sender: FDA-Public Use
  Company Number: D0058049A

PATIENT

DRUGS (1)
  1. ZEFFIX [Suspect]
     Route: 065

REACTIONS (1)
  - NEUROPATHY PERIPHERAL [None]
